FAERS Safety Report 9770679 (Version 1)
Quarter: 2013Q4

REPORT INFORMATION
  Report Type: Spontaneous
  Country: JP (occurrence: JP)
  Receive Date: 20131218
  Receipt Date: 20131218
  Transmission Date: 20140711
  Serious: Yes (Other)
  Sender: FDA-Public Use
  Company Number: JP-GLAXOSMITHKLINE-B0952830A

PATIENT
  Age: 77 Year
  Sex: Male

DRUGS (1)
  1. AVOLVE [Suspect]
     Indication: URINE FLOW DECREASED
     Dosage: 1IUAX PER DAY
     Route: 048
     Dates: start: 20121225, end: 20130108

REACTIONS (1)
  - Urinary retention [Not Recovered/Not Resolved]
